FAERS Safety Report 4604878-8 (Version None)
Quarter: 2005Q1

REPORT INFORMATION
  Report Type: 
  Country: None (occurrence: None)
  Receive Date: 20050311
  Receipt Date: 20050228
  Transmission Date: 20050727
  Serious: Yes (Hospitalization)
  Sender: FDA-Public Use
  Company Number: FR-BRISTOL-MYERS SQUIBB COMPANY-12880464

PATIENT
  Age: 70 Year
  Sex: Male

DRUGS (3)
  1. ELISOR TABS 20 MG [Suspect]
     Indication: HYPERCHOLESTEROLAEMIA
     Dosage: 1/2 TAB BID
     Route: 048
  2. SECTRAL [Concomitant]
     Indication: HYPERTENSION
  3. DIAMICRON [Concomitant]
     Indication: DIABETES MELLITUS

REACTIONS (3)
  - BLOOD CREATINE PHOSPHOKINASE INCREASED [None]
  - FALL [None]
  - MYALGIA [None]
